FAERS Safety Report 7427894-X (Version None)
Quarter: 2011Q2

REPORT INFORMATION
  Report Type: 
  Country: None (occurrence: None)
  Receive Date: 20110421
  Receipt Date: 20110406
  Transmission Date: 20111010
  Serious: Yes (Death)
  Sender: FDA-Public Use
  Company Number: US-CELGENEUS-028-21880-11040756

PATIENT
  Sex: Male

DRUGS (8)
  1. DECADRON [Concomitant]
     Route: 065
  2. LIPITOR [Concomitant]
     Route: 065
  3. LASIX [Concomitant]
     Route: 065
  4. CALCIUM [Concomitant]
     Route: 065
  5. REVLIMID [Suspect]
     Indication: MULTIPLE MYELOMA
     Dosage: 15 MILLIGRAM
     Route: 048
     Dates: start: 20090801
  6. REPLAVITE [Concomitant]
     Route: 065
  7. ASPIRIN [Concomitant]
     Route: 065
  8. PANTOLOC [Concomitant]
     Route: 065

REACTIONS (1)
  - DEATH [None]
